FAERS Safety Report 25628192 (Version 1)
Quarter: 2025Q3

REPORT INFORMATION
  Report Type: Report from Study
  Country: CA (occurrence: CA)
  Receive Date: 20250731
  Receipt Date: 20250731
  Transmission Date: 20251021
  Serious: Yes (Other)
  Sender: TAKEDA
  Company Number: CA-TAKEDA-2023TUS122836

PATIENT
  Age: 38 Year
  Sex: Female

DRUGS (4)
  1. VEDOLIZUMAB [Suspect]
     Active Substance: VEDOLIZUMAB
     Indication: Crohn^s disease
  2. VEDOLIZUMAB [Suspect]
     Active Substance: VEDOLIZUMAB
  3. VEDOLIZUMAB [Suspect]
     Active Substance: VEDOLIZUMAB
  4. LOVENOX [Concomitant]
     Active Substance: ENOXAPARIN SODIUM

REACTIONS (4)
  - Poor venous access [Unknown]
  - Infusion site extravasation [Unknown]
  - Pregnancy [Unknown]
  - Dizziness [Unknown]

NARRATIVE: CASE EVENT DATE: 20241010
